FAERS Safety Report 20315431 (Version 1)
Quarter: 2022Q1

REPORT INFORMATION
  Report Type: Spontaneous
  Country: US (occurrence: None)
  Receive Date: 20220110
  Receipt Date: 20220110
  Transmission Date: 20220423
  Serious: No
  Sender: FDA-Public Use
  Company Number: US-Unichem Pharmaceuticals (USA) Inc-UCM202103-000240

PATIENT
  Age: 54 Year
  Sex: Male

DRUGS (3)
  1. MELOXICAM [Suspect]
     Active Substance: MELOXICAM
     Indication: Back pain
  2. MELOXICAM [Suspect]
     Active Substance: MELOXICAM
     Indication: Inflammation
  3. DILONA [Concomitant]
     Indication: Pain
     Dosage: UNKNOWN

REACTIONS (1)
  - Hypoaesthesia [Recovered/Resolved]

NARRATIVE: CASE EVENT DATE: 20210306
